FAERS Safety Report 25115948 (Version 1)
Quarter: 2025Q1

REPORT INFORMATION
  Report Type: Other
  Country: CA (occurrence: CA)
  Receive Date: 20250325
  Receipt Date: 20250325
  Transmission Date: 20250409
  Serious: Yes (Hospitalization, Other)
  Sender: APOTEX
  Company Number: CA-APOTEX-2025AP003486

PATIENT
  Age: 75 Year
  Sex: Male

DRUGS (1)
  1. ROSUVASTATIN [Suspect]
     Active Substance: ROSUVASTATIN
     Indication: Product used for unknown indication
     Dosage: 5 MILLIGRAM, QD
     Route: 065

REACTIONS (6)
  - Oliguria [Recovering/Resolving]
  - Fall [Recovering/Resolving]
  - Rhabdomyolysis [Recovering/Resolving]
  - Acute kidney injury [Recovering/Resolving]
  - Muscular weakness [Recovering/Resolving]
  - Myositis [Recovering/Resolving]
